FAERS Safety Report 9181432 (Version 2)
Quarter: 2013Q2

REPORT INFORMATION
  Report Type: Spontaneous
  Country: CZ (occurrence: CZ)
  Receive Date: 20130322
  Receipt Date: 20130401
  Transmission Date: 20140414
  Serious: Yes (Death, Hospitalization, Other)
  Sender: FDA-Public Use
  Company Number: CZ-ELI_LILLY_AND_COMPANY-CZ201303005137

PATIENT
  Sex: Male

DRUGS (13)
  1. FORSTEO [Suspect]
     Indication: OSTEOPOROSIS
     Dosage: 20 UG, QD
     Route: 058
     Dates: start: 20120622
  2. METHYLPREDNISOLONE [Concomitant]
     Indication: VASCULITIS
     Dosage: 16 MG, UNKNOWN
  3. RITUXIMAB [Concomitant]
     Indication: VASCULITIS
  4. PANTOPRAZOL [Concomitant]
  5. CALCIUM+D3 [Concomitant]
     Indication: OSTEOPOROSIS
  6. ALLOPURINOL [Concomitant]
     Indication: HYPERURICAEMIA
  7. WARFARIN [Concomitant]
     Indication: VENOUS THROMBOSIS
  8. METOPROLOL [Concomitant]
     Indication: HYPERTENSION
  9. FUROSEMIDE [Concomitant]
     Indication: OEDEMA
  10. GABAPENTIN [Concomitant]
  11. TELMISARTAN [Concomitant]
     Indication: HYPERTENSION
  12. KALIUM CHLORID [Concomitant]
     Indication: HYPOKALAEMIA
  13. FLUCONAZOL [Concomitant]
     Indication: CANDIDA INFECTION

REACTIONS (3)
  - Pneumonia [Fatal]
  - Influenza [Not Recovered/Not Resolved]
  - Lung infiltration [Unknown]
